FAERS Safety Report 6532958-9 (Version None)
Quarter: 2010Q1

REPORT INFORMATION
  Report Type: 
  Country: None (occurrence: None)
  Receive Date: 20100105
  Receipt Date: 20081217
  Transmission Date: 20100710
  Serious: Yes (Other)
  Sender: FDA-Public Use
  Company Number: 2008AP003606

PATIENT
  Age: 10 Year
  Sex: Male

DRUGS (5)
  1. ALBUTEROL SULFATE [Suspect]
     Indication: COUGH
     Dosage: 2.5 MG; INH
     Route: 055
  2. CEFTRIAXONE [Suspect]
     Indication: RESPIRATORY DISTRESS
  3. CEFTIN [Concomitant]
  4. AZITHROMYCIN [Concomitant]
  5. VANCOMYCIN [Concomitant]

REACTIONS (7)
  - CARDIOGENIC SHOCK [None]
  - HAEMOLYSIS [None]
  - HEART RATE DECREASED [None]
  - LOSS OF CONSCIOUSNESS [None]
  - MYOCARDIAL ISCHAEMIA [None]
  - SINUS TACHYCARDIA [None]
  - TYPE III IMMUNE COMPLEX MEDIATED REACTION [None]
